FAERS Safety Report 7166444-2 (Version None)
Quarter: 2010Q4

REPORT INFORMATION
  Report Type: 
  Country: None (occurrence: None)
  Receive Date: 20101216
  Receipt Date: 20101206
  Transmission Date: 20110411
  Serious: No
  Sender: FDA-Public Use
  Company Number: PHFR2010GB05478

PATIENT
  Sex: Female

DRUGS (8)
  1. TEGRETOL [Suspect]
     Indication: PETIT MAL EPILEPSY
     Dosage: 200 MG, BID
     Route: 048
  2. SALBUTAMOL [Concomitant]
     Dosage: UNK
  3. ENALAPRIL MALEATE [Concomitant]
     Indication: HYPERTENSION
     Dosage: 2.5 MG, QD
  4. FELODIPINE [Concomitant]
     Indication: HYPERTENSION
     Dosage: 10 MG, UNK
     Route: 048
  5. CO-AMILOFRUSE [Concomitant]
     Indication: HYPERTENSION
     Dosage: 5/40 MG, UNK
     Route: 048
  6. ATORVASTATIN [Concomitant]
     Indication: LIPIDS
     Dosage: 40 MG, QD
     Route: 048
  7. RISEDRONATE SODIUM [Concomitant]
     Indication: PROPHYLAXIS
     Dosage: 35 MG, QW
     Route: 048
  8. CALCICHEW [Concomitant]
     Indication: PROPHYLAXIS
     Dosage: 1 DF, QD
     Route: 048

REACTIONS (1)
  - PETIT MAL EPILEPSY [None]
